FAERS Safety Report 6721428-0 (Version None)
Quarter: 2010Q2

REPORT INFORMATION
  Report Type: 
  Country: None (occurrence: None)
  Receive Date: 20100512
  Receipt Date: 20100504
  Transmission Date: 20101027
  Serious: Yes (Other)
  Sender: FDA-Public Use
  Company Number: BR-BRISTOL-MYERS SQUIBB COMPANY-15092638

PATIENT
  Age: 70 Year
  Sex: Female
  Weight: 62 kg

DRUGS (5)
  1. HYDREA [Suspect]
     Dosage: DOSAGE TAKEN ABOUT 15 YEARS AGO.
  2. LETROZOLE [Concomitant]
  3. ISOFLAVONE [Concomitant]
  4. PLANTABEN [Concomitant]
  5. ROHYPNOL [Concomitant]

REACTIONS (3)
  - BREAST CANCER [None]
  - COUNTERFEIT DRUG ADMINISTERED [None]
  - DRUG INEFFECTIVE [None]
